FAERS Safety Report 15955944 (Version 4)
Quarter: 2019Q2

REPORT INFORMATION
  Report Type: Report from Study
  Country: US (occurrence: US)
  Receive Date: 20190213
  Receipt Date: 20190527
  Transmission Date: 20190711
  Serious: Yes (Other)
  Sender: FDA-Public Use
  Company Number: US-BRISTOL-MYERS SQUIBB COMPANY-BMS-2019-014671

PATIENT
  Sex: Male

DRUGS (1)
  1. NIVOLUMAB [Suspect]
     Active Substance: NIVOLUMAB
     Indication: RENAL CELL CARCINOMA
     Dosage: UNK, Q2WK
     Route: 042
     Dates: start: 20181231

REACTIONS (8)
  - Weight decreased [Recovered/Resolved]
  - Glomerular filtration rate decreased [Unknown]
  - Increased appetite [Unknown]
  - Dyspnoea [Unknown]
  - Joint swelling [Unknown]
  - Influenza [Unknown]
  - Vertebral column mass [Unknown]
  - Nasopharyngitis [Unknown]
